FAERS Safety Report 11048742 (Version 1)
Quarter: 2015Q2

REPORT INFORMATION
  Report Type: Spontaneous
  Country: IN (occurrence: IN)
  Receive Date: 20150420
  Receipt Date: 20150420
  Transmission Date: 20150821
  Serious: Yes (Death)
  Sender: FDA-Public Use
  Company Number: IN-CIPLA LTD.-2015IN02964

PATIENT

DRUGS (3)
  1. ZIDOVUDINE/STAVUDINE [Suspect]
     Active Substance: STAVUDINE\ZIDOVUDINE
     Indication: HIV INFECTION
     Route: 065
  2. NEVIRAPINE/EFAVIRENZ [Suspect]
     Active Substance: EFAVIRENZ\NEVIRAPINE
     Indication: HIV INFECTION
     Route: 065
  3. LAMIVUDINE. [Suspect]
     Active Substance: LAMIVUDINE
     Indication: HIV INFECTION
     Dosage: 300 MG, QD
     Route: 065

REACTIONS (1)
  - Death [Fatal]
